FAERS Safety Report 23252440 (Version 1)
Quarter: 2023Q4

REPORT INFORMATION
  Report Type: Spontaneous
  Country: TW (occurrence: TW)
  Receive Date: 20231201
  Receipt Date: 20231201
  Transmission Date: 20240110
  Serious: Yes (Hospitalization)
  Sender: FDA-Public Use
  Company Number: TW-SANOFI-01848919

PATIENT

DRUGS (1)
  1. HYDROXYCHLOROQUINE SULFATE [Suspect]
     Active Substance: HYDROXYCHLOROQUINE SULFATE
     Indication: Immune system disorder
     Dosage: 1 DF, BID, FILM-COATED TABLET
     Route: 065

REACTIONS (2)
  - Hospitalisation [Unknown]
  - Visual acuity reduced [Unknown]
